FAERS Safety Report 23528606 (Version 1)
Quarter: 2024Q1

REPORT INFORMATION
  Report Type: Report from Study
  Country: GT (occurrence: GT)
  Receive Date: 20240215
  Receipt Date: 20240215
  Transmission Date: 20240410
  Serious: Yes (Death)
  Sender: FDA-Public Use
  Company Number: GT-SERVIER-S24001265

PATIENT
  Sex: Female

DRUGS (4)
  1. IVABRADINE [Suspect]
     Active Substance: IVABRADINE
     Indication: Product used for unknown indication
     Dosage: 1 DOSAGE FORM, QD
     Route: 065
     Dates: start: 202302, end: 20240202
  2. Nucleo cmp forte [Concomitant]
     Indication: Nervous system disorder
     Dosage: UNK
     Dates: end: 20240202
  3. METHYLCOBALAMIN [Concomitant]
     Active Substance: METHYLCOBALAMIN
     Indication: Nervous system disorder
     Dosage: UNK
     Dates: end: 20240202
  4. DAPAGLIFLOZIN [Concomitant]
     Active Substance: DAPAGLIFLOZIN
     Indication: Product used for unknown indication
     Dosage: 10 MILLIGRAM, QD
     Dates: end: 20240202

REACTIONS (2)
  - Death [Fatal]
  - Product use issue [Fatal]

NARRATIVE: CASE EVENT DATE: 20240201
